FAERS Safety Report 24426949 (Version 1)
Quarter: 2024Q4

REPORT INFORMATION
  Report Type: Spontaneous
  Country: US (occurrence: None)
  Receive Date: 20241010
  Receipt Date: 20241010
  Transmission Date: 20250114
  Serious: Yes (Disabling)
  Sender: Public
  Company Number: None

PATIENT
  Age: 26 Year
  Sex: Female
  Weight: 60.75 kg

DRUGS (1)
  1. CIPROFLOXACIN [Suspect]
     Active Substance: CIPROFLOXACIN
     Indication: Gastrointestinal infection
     Dates: start: 20240805, end: 20240806

REACTIONS (3)
  - Tendonitis [None]
  - Gait inability [None]
  - Neurological symptom [None]

NARRATIVE: CASE EVENT DATE: 20240805
